FAERS Safety Report 13218183 (Version 1)
Quarter: 2017Q1

REPORT INFORMATION
  Report Type: Other
  Country: US (occurrence: US)
  Receive Date: 20170210
  Receipt Date: 20170210
  Transmission Date: 20170428
  Serious: No
  Sender: FDA-Public Use
  Company Number: US-ACORDA-ACO_122531_2016

PATIENT
  Age: 62 Year
  Sex: Female
  Weight: 59.86 kg

DRUGS (4)
  1. AMPYRA [Suspect]
     Active Substance: DALFAMPRIDINE
     Dosage: UNK
  2. COPAXONE [Concomitant]
     Active Substance: GLATIRAMER ACETATE
     Indication: PRODUCT USED FOR UNKNOWN INDICATION
     Dosage: 40 MG, UNK
     Route: 065
  3. AMPYRA [Suspect]
     Active Substance: DALFAMPRIDINE
     Indication: GAIT DISTURBANCE
     Dosage: 10 MG, BID
     Route: 048
     Dates: start: 2016
  4. AMPYRA [Suspect]
     Active Substance: DALFAMPRIDINE
     Dosage: UNK
     Route: 065
     Dates: start: 20160402

REACTIONS (5)
  - Throat irritation [Not Recovered/Not Resolved]
  - Cough [Recovered/Resolved]
  - Cough [Not Recovered/Not Resolved]
  - Therapy cessation [Unknown]
  - Upper-airway cough syndrome [Not Recovered/Not Resolved]

NARRATIVE: CASE EVENT DATE: 2016
